FAERS Safety Report 6080549-9 (Version None)
Quarter: 2009Q1

REPORT INFORMATION
  Report Type: 
  Country: None (occurrence: None)
  Receive Date: 20090217
  Receipt Date: 20090213
  Transmission Date: 20090719
  Serious: Yes (Other)
  Sender: FDA-Public Use
  Company Number: B0542975A

PATIENT
  Age: 76 Year
  Sex: Male
  Weight: 54 kg

DRUGS (13)
  1. ARIXTRA [Suspect]
     Indication: THROMBOSIS PROPHYLAXIS
     Dosage: 2.5MG PER DAY
     Route: 058
     Dates: start: 20070825, end: 20070826
  2. OLMETEC [Concomitant]
     Indication: ANGINA PECTORIS
     Dosage: 40MG PER DAY
     Route: 048
  3. VASOLAN [Concomitant]
     Indication: CARDIAC FAILURE
     Dosage: 120MG PER DAY
     Route: 048
  4. FLIVAS [Concomitant]
     Indication: BENIGN PROSTATIC HYPERPLASIA
     Dosage: 50MG PER DAY
     Route: 048
  5. MAGNESIUM OXIDE [Concomitant]
     Indication: CONSTIPATION
     Dosage: 6G PER DAY
     Route: 048
  6. MUCODYNE [Concomitant]
     Indication: ASTHMA
     Dosage: 750MG PER DAY
     Route: 048
  7. PREDNISOLONE [Concomitant]
     Indication: ASTHMA
     Dosage: 1MG PER DAY
     Route: 048
  8. ALTAT [Concomitant]
     Indication: GASTRIC ULCER
     Dosage: 75MG PER DAY
     Route: 048
  9. ALESION [Concomitant]
     Dosage: 20MG PER DAY
     Route: 048
  10. ALDECIN AQ [Concomitant]
     Route: 045
  11. LOXOPROFEN [Concomitant]
     Indication: ANALGESIA
     Route: 048
     Dates: start: 20070824, end: 20070905
  12. RASENAZOLIN [Concomitant]
     Indication: INFECTION PROPHYLAXIS
     Dosage: 3G PER DAY
     Route: 042
     Dates: start: 20070824, end: 20070825
  13. VOLTAREN [Concomitant]
     Indication: ANALGESIA
     Route: 054
     Dates: start: 20070824, end: 20070829

REACTIONS (1)
  - HYPERKALAEMIA [None]
